FAERS Safety Report 5162249-2 (Version None)
Quarter: 2006Q4

REPORT INFORMATION
  Report Type: 
  Country: None (occurrence: None)
  Receive Date: 20061121
  Receipt Date: 20061106
  Transmission Date: 20070319
  Serious: Yes (Other)
  Sender: FDA-Public Use
  Company Number: DSA_81748_2006

PATIENT
  Age: 49 Year
  Sex: Female
  Weight: 77.1115 kg

DRUGS (8)
  1. XYREM [Suspect]
     Indication: INSOMNIA
     Dosage: 3 G QHS PO
     Route: 048
     Dates: start: 20061103, end: 20061103
  2. XYREM [Suspect]
     Indication: PAIN
     Dosage: 3 G QHS PO
     Route: 048
     Dates: start: 20061103, end: 20061103
  3. XYREM [Suspect]
     Indication: INSOMNIA
     Dosage: DF PO
     Route: 048
  4. XYREM [Suspect]
     Indication: PAIN
     Dosage: DF PO
     Route: 048
  5. PROZAC [Concomitant]
  6. CLONAZEPAM [Concomitant]
  7. ACIPHEX [Concomitant]
  8. DURAGESIC-100 [Concomitant]

REACTIONS (8)
  - CONTUSION [None]
  - CONVULSION [None]
  - DRUG DOSE OMISSION [None]
  - FACIAL BONES FRACTURE [None]
  - FALL [None]
  - HAEMATOMA [None]
  - HAEMORRHAGE [None]
  - PERIORBITAL HAEMATOMA [None]
